FAERS Safety Report 4752290-3 (Version None)
Quarter: 2005Q3

REPORT INFORMATION
  Report Type: 
  Country: None (occurrence: None)
  Receive Date: 20050824
  Receipt Date: 20050824
  Transmission Date: 20060218
  Serious: Yes (Life-Threatening)
  Sender: FDA-Public Use
  Company Number: None

PATIENT
  Age: 64 Year
  Sex: Female
  Weight: 86.1 kg

DRUGS (11)
  1. PACLITAXEL 300MG / 50 ML BEDFORD LABS [Suspect]
     Indication: OVARIAN CANCER
     Dosage: 300 MG ONCE IV DRIP
     Route: 041
     Dates: start: 20050713, end: 20050713
  2. PACLITAXEL 30 MG / 5 ML BEDFORD LABS [Suspect]
     Indication: OVARIAN CANCER
     Dosage: 30 MG ONCE IV DRIP
     Route: 041
     Dates: start: 20050713, end: 20050713
  3. FAMOTIDINE IV [Concomitant]
  4. BENADRYL [Concomitant]
  5. DEXAMETHASONE [Concomitant]
  6. ZOFRAN [Concomitant]
  7. ATIVAN [Concomitant]
  8. DIOVAN [Concomitant]
  9. TENORMIN [Concomitant]
  10. BECONASE AQ [Concomitant]
  11. COLACE [Concomitant]

REACTIONS (8)
  - CARDIO-RESPIRATORY ARREST [None]
  - CYANOSIS [None]
  - DRUG INTERACTION [None]
  - DRUG TOXICITY [None]
  - DYSPNOEA [None]
  - INFUSION RELATED REACTION [None]
  - LOSS OF CONSCIOUSNESS [None]
  - OXYGEN SATURATION DECREASED [None]
